FAERS Safety Report 15082768 (Version 1)
Quarter: 2018Q2

REPORT INFORMATION
  Report Type: Spontaneous
  Country: ES (occurrence: ES)
  Receive Date: 20180628
  Receipt Date: 20180628
  Transmission Date: 20180711
  Serious: Yes (Death, Hospitalization, Other)
  Sender: FDA-Public Use
  Company Number: ES-CELGENEUS-ESP-20180607912

PATIENT
  Age: 66 Year
  Sex: Male

DRUGS (6)
  1. REVLIMID [Suspect]
     Active Substance: LENALIDOMIDE
     Indication: PLASMA CELL MYELOMA
     Dosage: 15 MILLIGRAM
     Route: 048
  2. DEXAMETHASONE. [Concomitant]
     Active Substance: DEXAMETHASONE
     Dosage: BORTEZOMIB-DEXAMETHASONE
     Route: 065
     Dates: start: 201405
  3. DEXAMETHASONE. [Concomitant]
     Active Substance: DEXAMETHASONE
     Dosage: BORTEZOMIB-DEXAMETHASONE
     Route: 065
  4. DEXAMETHASONE. [Concomitant]
     Active Substance: DEXAMETHASONE
     Indication: PLASMA CELL MYELOMA
     Dosage: 2.8571 MILLIGRAM
     Route: 065
  5. DEXAMETHASONE. [Concomitant]
     Active Substance: DEXAMETHASONE
     Dosage: BORTEZOMIB-DEXAMETHASONE
     Route: 065
     Dates: start: 201301
  6. DEXAMETHASONE. [Concomitant]
     Active Substance: DEXAMETHASONE
     Dosage: BORTEZOMIB-DEXAMETHASONE
     Route: 065
     Dates: start: 2009

REACTIONS (7)
  - Urinary incontinence [Unknown]
  - Mobility decreased [Unknown]
  - Thrombocytopenia [Unknown]
  - General physical health deterioration [Unknown]
  - Intracranial pressure increased [Unknown]
  - Death [Fatal]
  - Cognitive disorder [Unknown]
